FAERS Safety Report 10166501 (Version 3)
Quarter: 2014Q2

REPORT INFORMATION
  Report Type: Report from Study
  Country: FR (occurrence: FR)
  Receive Date: 20140512
  Receipt Date: 20140515
  Transmission Date: 20141212
  Serious: Yes (Hospitalization)
  Sender: FDA-Public Use
  Company Number: FR-ROCHE-1349919

PATIENT
  Age: 75 Year
  Sex: Female
  Weight: 55 kg

DRUGS (22)
  1. OBINUTUZUMAB [Suspect]
     Dosage: ONCE
     Route: 042
     Dates: start: 20140227, end: 20140227
  2. OBINUTUZUMAB [Suspect]
     Dosage: ONCE
     Route: 042
     Dates: start: 20140311, end: 20140311
  3. BENDAMUSTINE [Suspect]
     Indication: CHRONIC LYMPHOCYTIC LEUKAEMIA
     Route: 042
     Dates: start: 20140213, end: 20140213
  4. BENDAMUSTINE [Suspect]
     Route: 042
     Dates: start: 20140214, end: 20140214
  5. BENDAMUSTINE [Suspect]
     Route: 042
     Dates: start: 20140311, end: 20140311
  6. BENDAMUSTINE [Suspect]
     Route: 042
     Dates: start: 20140312, end: 20140312
  7. TENORETIC [Concomitant]
     Indication: HYPERTENSION
     Dosage: 50/12.5 MG
     Route: 048
  8. METHYLPREDNISOLON [Concomitant]
     Route: 065
     Dates: start: 20140211, end: 20140211
  9. DEXCHLORPHENIRAMINE [Concomitant]
     Route: 065
     Dates: start: 20140211, end: 20140211
  10. PARACETAMOL [Concomitant]
     Route: 065
  11. ESOMEPRAZOLE [Concomitant]
     Indication: GASTROOESOPHAGEAL REFLUX DISEASE
     Route: 048
  12. PRAVASTATINE [Concomitant]
     Indication: HYPERCHOLESTEROLAEMIA
     Route: 048
  13. ZELITREX [Concomitant]
     Route: 048
     Dates: start: 20140211, end: 20140211
  14. POLARAMINE [Concomitant]
     Route: 042
     Dates: start: 20140211, end: 20140211
  15. FASTURTEC [Concomitant]
     Route: 042
     Dates: start: 20140213, end: 20140213
  16. ZOPHREN [Concomitant]
     Route: 042
     Dates: start: 20140213, end: 20140213
  17. ZOPHREN [Concomitant]
     Route: 042
     Dates: start: 20140216, end: 20140216
  18. PRIMPERAN [Concomitant]
     Route: 042
     Dates: start: 20140215, end: 20140215
  19. LASILIX [Concomitant]
     Route: 042
     Dates: start: 20140216, end: 20140216
  20. OBINUTUZUMAB [Suspect]
     Indication: CHRONIC LYMPHOCYTIC LEUKAEMIA
     Dosage: FREQUENCY AS PER PROTOCOL : DAYS 1/2 (SPLIT DOSE), 8 AND 15 OF CYCLE 1, AND ON DAY 1 OF CYCLES 2-6.
     Route: 042
     Dates: start: 20140211, end: 20140211
  21. OBINUTUZUMAB [Suspect]
     Dosage: ONCE
     Route: 042
     Dates: start: 20140214, end: 20140214
  22. OBINUTUZUMAB [Suspect]
     Dosage: ONCE
     Route: 042
     Dates: start: 20140220, end: 20140220

REACTIONS (1)
  - Syncope [Recovered/Resolved]
